FAERS Safety Report 9283781 (Version 1)
Quarter: 2013Q2

REPORT INFORMATION
  Report Type: Spontaneous
  Country: US (occurrence: None)
  Receive Date: 20130506
  Receipt Date: 20130506
  Transmission Date: 20140414
  Serious: Yes (Other)
  Sender: FDA-Public Use
  Company Number: SYM-2013-03267

PATIENT
  Age: 59 Year
  Sex: Female

DRUGS (1)
  1. CARAC [Suspect]
     Indication: ACTINIC KERATOSIS
     Route: 061
     Dates: start: 20130316, end: 20130411

REACTIONS (5)
  - Chest pain [None]
  - Pyrexia [None]
  - Chills [None]
  - Headache [None]
  - Infection [None]
